FAERS Safety Report 6940241-2 (Version None)
Quarter: 2010Q3

REPORT INFORMATION
  Report Type: 
  Country: None (occurrence: None)
  Receive Date: 20100825
  Receipt Date: 20100817
  Transmission Date: 20110219
  Serious: Yes (Hospitalization, Other)
  Sender: FDA-Public Use
  Company Number: US-ELI_LILLY_AND_COMPANY-US201006005494

PATIENT
  Sex: Female

DRUGS (8)
  1. HUMULIN 70/30 [Suspect]
     Indication: DIABETES MELLITUS
     Dosage: 50 U, EACH MORNING
     Dates: start: 19950621
  2. HUMULIN 70/30 [Suspect]
     Dosage: 35 U, EACH EVENING
     Dates: start: 19950621
  3. HUMULIN 70/30 [Suspect]
     Dosage: 50 U, EACH MORNING
     Dates: start: 19950621
  4. HUMULIN 70/30 [Suspect]
     Dosage: 35 U, EACH EVENING
     Dates: start: 19950621
  5. SULFAMETHOXAZOLE [Concomitant]
  6. ZETIA [Concomitant]
  7. PRAVASTATIN [Concomitant]
  8. LISINOPRIL [Concomitant]

REACTIONS (5)
  - BLOOD GLUCOSE INCREASED [None]
  - COLON CANCER [None]
  - POLYP [None]
  - URINARY INCONTINENCE [None]
  - URINARY TRACT INFECTION [None]
